FAERS Safety Report 6558259-0 (Version None)
Quarter: 2010Q1

REPORT INFORMATION
  Report Type: 
  Country: None (occurrence: None)
  Receive Date: 20100128
  Receipt Date: 20100128
  Transmission Date: 20100710
  Serious: Yes (Life-Threatening, Hospitalization, Other)
  Sender: FDA-Public Use
  Company Number: None

PATIENT
  Sex: Male
  Weight: 82.5547 kg

DRUGS (3)
  1. SIMVASTATIN [Suspect]
     Indication: BLOOD CHOLESTEROL INCREASED
     Dosage: 20MG. QHS PO
     Route: 048
     Dates: start: 20070430, end: 20080801
  2. WARFARIN SODIUM [Concomitant]
  3. ENOXAPARIN SODIUM [Concomitant]

REACTIONS (3)
  - MUSCLE RUPTURE [None]
  - PAIN [None]
  - THROMBOSIS [None]
